FAERS Safety Report 7272107-5 (Version None)
Quarter: 2011Q1

REPORT INFORMATION
  Report Type: 
  Country: None (occurrence: None)
  Receive Date: 20110128
  Receipt Date: 20110113
  Transmission Date: 20110831
  Serious: Yes (Other)
  Sender: FDA-Public Use
  Company Number: AUR-APL-2011-00260

PATIENT
  Age: 67 Year
  Sex: Female
  Weight: 87.5 kg

DRUGS (4)
  1. DICLOFENAC [Concomitant]
  2. LANSOPRAZOLE [Concomitant]
  3. PRAVASTATIN [Concomitant]
  4. PERINDOPRIL ERBUMINE [Suspect]
     Dates: start: 20110107

REACTIONS (1)
  - ANXIETY [None]
